FAERS Safety Report 7314345-9 (Version None)
Quarter: 2011Q1

REPORT INFORMATION
  Report Type: 
  Country: None (occurrence: None)
  Receive Date: 20110218
  Receipt Date: 20110218
  Transmission Date: 20110831
  Serious: Yes (Hospitalization)
  Sender: FDA-Public Use
  Company Number: None

PATIENT
  Age: 48 Year
  Sex: Female

DRUGS (1)
  1. PERPHENAZINE [Suspect]
     Dosage: 2 MG PRN PO
     Route: 048
     Dates: start: 20101217, end: 20101220

REACTIONS (6)
  - JOINT STIFFNESS [None]
  - DYSARTHRIA [None]
  - PAIN IN JAW [None]
  - PARAESTHESIA ORAL [None]
  - TARDIVE DYSKINESIA [None]
  - DYSTONIA [None]
